FAERS Safety Report 9994057 (Version 2)
Quarter: 2014Q1

REPORT INFORMATION
  Report Type: Spontaneous
  Country: US (occurrence: US)
  Receive Date: 20140310
  Receipt Date: 20140310
  Transmission Date: 20141002
  Serious: No
  Sender: FDA-Public Use
  Company Number: US-AMGEN-USASP2013080153

PATIENT
  Age: 66 Year
  Sex: Female
  Weight: 84 kg

DRUGS (12)
  1. SENSIPAR [Suspect]
     Indication: HYPERPARATHYROIDISM SECONDARY
     Dosage: 30 MG, QD
     Route: 048
     Dates: start: 20130408
  2. LOSARTAN [Concomitant]
     Dosage: 50 MG, UNK
  3. INSULIN [Concomitant]
     Dosage: UNK
  4. VITAMIN D                          /00107901/ [Concomitant]
     Dosage: UNK
  5. XANAX [Concomitant]
     Dosage: UNK
  6. ALLOPURINOL [Concomitant]
  7. CARVEDILOL [Concomitant]
     Dosage: UNK
  8. ASPIRIN [Concomitant]
     Dosage: UNK
  9. PRILOSEC                           /00661201/ [Concomitant]
  10. RENVELA [Concomitant]
  11. AMITRIPTYLINE [Concomitant]
     Dosage: UNK
  12. SIMVASTATIN [Concomitant]

REACTIONS (2)
  - Hypertension [Recovered/Resolved]
  - Drug hypersensitivity [Unknown]
